FAERS Safety Report 11580865 (Version 1)
Quarter: 2015Q4

REPORT INFORMATION
  Report Type: Spontaneous
  Country: US (occurrence: US)
  Receive Date: 20151001
  Receipt Date: 20151001
  Transmission Date: 20160304
  Serious: No
  Sender: FDA-Public Use
  Company Number: US-GLENMARK PHARMACEUTICALS INC, USA.-2015GMK014466

PATIENT
  Sex: Male

DRUGS (2)
  1. CLOTRIMAZOLE CREAM [Suspect]
     Active Substance: CLOTRIMAZOLE
     Indication: TINEA CRURIS
     Dosage: UNK, BID
     Route: 061
     Dates: start: 20150218
  2. FLUCONAZOLE. [Concomitant]
     Active Substance: FLUCONAZOLE
     Indication: ANTIFUNGAL TREATMENT
     Dosage: 200 MG, QD
     Route: 048
     Dates: start: 20150218

REACTIONS (3)
  - Dry skin [Unknown]
  - Disease progression [Unknown]
  - Tinea cruris [Unknown]
